FAERS Safety Report 14419634 (Version 4)
Quarter: 2020Q1

REPORT INFORMATION
  Report Type: Report from Study
  Country: US (occurrence: US)
  Receive Date: 20180122
  Receipt Date: 20200228
  Transmission Date: 20200409
  Serious: Yes (Hospitalization, Other)
  Sender: FDA-Public Use
  Company Number: US-SA-2018SA012568

PATIENT
  Age: 67 Year
  Sex: Male

DRUGS (11)
  1. INSULIN GLARGINE [Suspect]
     Active Substance: INSULIN GLARGINE
     Dosage: 70 IU, QD
     Route: 058
  2. XARELTO [Concomitant]
     Active Substance: RIVAROXABAN
     Dosage: UNK
  3. METOPROLOL. [Concomitant]
     Active Substance: METOPROLOL
  4. HUMALOG [Concomitant]
     Active Substance: INSULIN LISPRO
     Dosage: SLIDING SCALE BEFORE MEALS 7-10 UNITS
  5. ENOXAPARIN SODIUM. [Suspect]
     Active Substance: ENOXAPARIN SODIUM
     Indication: ANTICOAGULANT THERAPY
     Dosage: 100 MG, BID
     Route: 058
     Dates: start: 2017
  6. ALLOPURINOL. [Concomitant]
     Active Substance: ALLOPURINOL
     Indication: ARTHRITIS
     Dosage: 100 MG
     Dates: start: 2006
  7. ENOXAPARIN SODIUM. [Suspect]
     Active Substance: ENOXAPARIN SODIUM
     Indication: POSTOPERATIVE CARE
     Dosage: UNK
     Route: 058
     Dates: start: 201610, end: 2017
  8. METFORMIN [Concomitant]
     Active Substance: METFORMIN HYDROCHLORIDE
     Dosage: UNK
  9. INSULIN GLARGINE [Suspect]
     Active Substance: INSULIN GLARGINE
     Indication: NEOPLASM MALIGNANT
     Dosage: 40 IU, BID
     Route: 051
     Dates: start: 20161009, end: 20180125
  10. INSULIN GLARGINE [Suspect]
     Active Substance: INSULIN GLARGINE
     Indication: DIABETES MELLITUS
     Dosage: 40 IU, BID
     Route: 051
     Dates: start: 201801
  11. COLCRYS [Concomitant]
     Active Substance: COLCHICINE
     Indication: ARTHRITIS
     Dosage: 6 MG
     Dates: start: 2006

REACTIONS (29)
  - Nephrolithiasis [Recovered/Resolved]
  - Pain in extremity [Unknown]
  - Vomiting [Recovered/Resolved]
  - Abdominal pain upper [Unknown]
  - Blood glucose increased [Unknown]
  - Rib fracture [Unknown]
  - Lymphadenopathy [Unknown]
  - Vein disorder [Unknown]
  - Hyperglycaemia [Unknown]
  - Weight increased [Recovering/Resolving]
  - Cardiac disorder [Unknown]
  - Insomnia [Not Recovered/Not Resolved]
  - Dizziness [Unknown]
  - Asthenia [Unknown]
  - Testicular disorder [Unknown]
  - Gastrooesophageal reflux disease [Recovering/Resolving]
  - Product use in unapproved indication [Unknown]
  - Product use issue [Unknown]
  - Product dispensing error [Unknown]
  - Fall [Unknown]
  - Neuropathy peripheral [Not Recovered/Not Resolved]
  - Neoplasm [Unknown]
  - Vascular compression [Unknown]
  - Abdominal distension [Recovering/Resolving]
  - Thrombosis [Recovered/Resolved]
  - Thrombosis [Unknown]
  - Joint dislocation [Not Recovered/Not Resolved]
  - Dyspepsia [Recovered/Resolved]
  - Flatulence [Unknown]

NARRATIVE: CASE EVENT DATE: 2016
